FAERS Safety Report 6611490-8 (Version None)
Quarter: 2010Q2

REPORT INFORMATION
  Report Type: 
  Country: None (occurrence: None)
  Receive Date: 20100218
  Receipt Date: 20091105
  Transmission Date: 20101027
  Serious: No
  Sender: FDA-Public Use
  Company Number: WAES 0911USA01250

PATIENT
  Age: 46 Year
  Sex: Female

DRUGS (4)
  1. ISENTRESS [Suspect]
     Indication: HIV INFECTION
     Dosage: 400 MG/BID/PO
     Route: 048
     Dates: start: 20090721
  2. COPAXONE [Concomitant]
  3. TRUVADA [Concomitant]
  4. BUPROPION HCL [Suspect]

REACTIONS (5)
  - DIARRHOEA [None]
  - DIZZINESS [None]
  - DYSPEPSIA [None]
  - MYALGIA [None]
  - NAUSEA [None]
